FAERS Safety Report 14092121 (Version 2)
Quarter: 2018Q1

REPORT INFORMATION
  Report Type: Report from Study
  Country: FR (occurrence: FR)
  Receive Date: 20171016
  Receipt Date: 20180117
  Transmission Date: 20180508
  Serious: Yes (Death)
  Sender: FDA-Public Use
  Company Number: FR-ROCHE-2006995

PATIENT
  Age: 69 Year
  Sex: Female

DRUGS (7)
  1. INNOHEP [Concomitant]
     Active Substance: TINZAPARIN SODIUM
  2. METEOSPASMYL [Concomitant]
     Active Substance: ALVERINE CITRATE\DIMETHICONE
  3. INEXIUM [Concomitant]
     Active Substance: ESOMEPRAZOLE
  4. ATEZOLIZUMAB. [Suspect]
     Active Substance: ATEZOLIZUMAB
     Indication: OVARIAN CANCER
     Dosage: LAST DOSE PRIOR TO THE EVENT: 01/SEP/2017
     Route: 042
     Dates: start: 20170721, end: 20170915
  5. BEVACIZUMAB. [Suspect]
     Active Substance: BEVACIZUMAB
     Indication: OVARIAN CANCER
     Dosage: LAST DOSE PRIOR TO THE EVENT: 01/SEP/2017
     Route: 042
     Dates: start: 20170721, end: 20170915
  6. CARBOPLATIN. [Suspect]
     Active Substance: CARBOPLATIN
     Indication: OVARIAN CANCER
     Dosage: LAST DOSE PRIOR TO THE EVENT: 01/SEP/2017
     Route: 042
     Dates: start: 20170721, end: 20170915
  7. PEGYLATED LIPOSOMAL DOXORUBICIN [Suspect]
     Active Substance: DOXORUBICIN
     Indication: OVARIAN CANCER
     Dosage: LAST DOSE PRIOR TO THE EVENT: 18/AUG/2017
     Route: 042
     Dates: start: 20170721, end: 20170915

REACTIONS (2)
  - Myocarditis [Fatal]
  - Myelodysplastic syndrome [Fatal]

NARRATIVE: CASE EVENT DATE: 20170915
